FAERS Safety Report 20996491 (Version 1)
Quarter: 2022Q2

REPORT INFORMATION
  Report Type: Spontaneous
  Country: US (occurrence: US)
  Receive Date: 20220623
  Receipt Date: 20220623
  Transmission Date: 20220721
  Serious: Yes (Other)
  Sender: FDA-Public Use
  Company Number: US-ASTPRD-AER-2022-009858

PATIENT
  Age: 83 Year
  Sex: Male

DRUGS (1)
  1. MYRBETRIQ [Suspect]
     Active Substance: MIRABEGRON
     Indication: Product used for unknown indication
     Route: 065
     Dates: start: 202206, end: 20220620

REACTIONS (3)
  - Penile haemorrhage [Unknown]
  - Nephrolithiasis [Unknown]
  - Penile burning sensation [Unknown]

NARRATIVE: CASE EVENT DATE: 20220601
